FAERS Safety Report 12562618 (Version 1)
Quarter: 2016Q3

REPORT INFORMATION
  Report Type: Spontaneous
  Country: JP (occurrence: JP)
  Receive Date: 20160715
  Receipt Date: 20160715
  Transmission Date: 20161109
  Serious: Yes (Death)
  Sender: FDA-Public Use
  Company Number: JP-PRINSTON PHARMACEUTICAL INC.-2016PRN00174

PATIENT
  Sex: Male
  Weight: 74.5 kg

DRUGS (3)
  1. FLUNITRAZEPAM [Suspect]
     Active Substance: FLUNITRAZEPAM
     Route: 065
  2. PAROXETINE. [Suspect]
     Active Substance: PAROXETINE
     Route: 065
  3. ETHANOL [Suspect]
     Active Substance: ALCOHOL
     Route: 065

REACTIONS (3)
  - Death [Fatal]
  - Drug interaction [Fatal]
  - Poisoning [Fatal]
